FAERS Safety Report 23671102 (Version 1)
Quarter: 2024Q1

REPORT INFORMATION
  Report Type: Spontaneous
  Country: CN (occurrence: CN)
  Receive Date: 20240326
  Receipt Date: 20240326
  Transmission Date: 20240410
  Serious: Yes (Other)
  Sender: FDA-Public Use
  Company Number: CN-BoehringerIngelheim-2024-BI-016183

PATIENT
  Age: 76 Year
  Sex: Female
  Weight: 50.0 kg

DRUGS (3)
  1. ATROVENT [Suspect]
     Active Substance: IPRATROPIUM BROMIDE
     Indication: Bronchitis
     Route: 055
     Dates: start: 20240317, end: 20240317
  2. AZLOCILLIN SODIUM [Suspect]
     Active Substance: AZLOCILLIN SODIUM
     Indication: Bronchitis
     Dosage: LYOPHILIZED POWDER
     Route: 042
     Dates: start: 20240317, end: 20240317
  3. SODIUM CHLORIDE [Concomitant]
     Active Substance: SODIUM CHLORIDE
     Indication: Bronchitis
     Route: 042
     Dates: start: 20240317, end: 20240317

REACTIONS (3)
  - Rash [Recovered/Resolved]
  - Erythema [Recovering/Resolving]
  - Pruritus [Recovering/Resolving]

NARRATIVE: CASE EVENT DATE: 20240317
